FAERS Safety Report 7176555-3 (Version None)
Quarter: 2010Q4

REPORT INFORMATION
  Report Type: 
  Country: None (occurrence: None)
  Receive Date: 20101220
  Receipt Date: 20101215
  Transmission Date: 20110411
  Serious: Yes (Other)
  Sender: FDA-Public Use
  Company Number: FI-PFIZER INC-2010172230

PATIENT
  Age: 64 Year
  Sex: Female

DRUGS (1)
  1. CHAMPIX [Suspect]
     Dosage: UNK

REACTIONS (4)
  - ANGER [None]
  - FEELING ABNORMAL [None]
  - PANIC DISORDER [None]
  - PSYCHOTIC BEHAVIOUR [None]
